FAERS Safety Report 7913438-2 (Version None)
Quarter: 2011Q4

REPORT INFORMATION
  Report Type: 
  Country: None (occurrence: None)
  Receive Date: 20111115
  Receipt Date: 20111107
  Transmission Date: 20120403
  Serious: Yes (Hospitalization)
  Sender: FDA-Public Use
  Company Number: US-BIOGENIDEC-2011BI040353

PATIENT
  Age: 39 Year
  Sex: Female

DRUGS (7)
  1. AMPYRA [Concomitant]
     Indication: MULTIPLE SCLEROSIS
     Route: 048
  2. TYSABRI [Suspect]
     Indication: MULTIPLE SCLEROSIS
     Route: 042
     Dates: start: 20070821
  3. PROVIGIL [Concomitant]
     Route: 048
  4. ERGOCALCIFEROL [Concomitant]
     Route: 048
  5. CALCIUM [Concomitant]
     Route: 048
  6. MULTI-VITAMIN [Concomitant]
  7. VITAMIN B COMPLEX CAP [Concomitant]

REACTIONS (2)
  - PNEUMONIA PRIMARY ATYPICAL [None]
  - BACK PAIN [None]
